FAERS Safety Report 6950110 (Version 2)
Quarter: 2014Q1

REPORT INFORMATION
  Report Type: Spontaneous
  Country: US (occurrence: None)
  Receive Date: 20090227
  Receipt Date: 20140304
  Transmission Date: 20141002
  Serious: Yes (Hospitalization, Other)
  Sender: FDA-Public Use
  Company Number: RB-5392-2008

PATIENT
  Sex: Male

DRUGS (3)
  1. SUBUTEX [Suspect]
     Indication: DRUG DEPENDENCE
     Dosage: 28 MG TRANSPLACENTAL
     Route: 064
     Dates: start: 200709, end: 200806
  2. KLONOPIN 0.5 MG [Suspect]
     Indication: PRODUCT USED FOR UNKNOWN INDICATION
     Dosage: 0.5 MG TID TRANSPLACENTAL, MOTHER WAS TAPERED DOWN TO UNKNOWN DOSES.  TRANSPLACLENTAL
     Route: 064
     Dates: end: 200806
  3. VALIUM [Suspect]
     Indication: PRODUCT USED FOR UNKNOWN INDICATION
     Route: 064
     Dates: end: 200806

REACTIONS (3)
  - Maternal exposure during pregnancy [None]
  - Drug withdrawal syndrome neonatal [None]
  - Exposure during pregnancy [None]
